FAERS Safety Report 5302494-6 (Version None)
Quarter: 2007Q2

REPORT INFORMATION
  Report Type: 
  Country: None (occurrence: None)
  Receive Date: 20070419
  Receipt Date: 20070412
  Transmission Date: 20071010
  Serious: Yes (Hospitalization)
  Sender: FDA-Public Use
  Company Number: US-ELI_LILLY_AND_COMPANY-US200704003001

PATIENT
  Age: 75 Year
  Sex: Female

DRUGS (1)
  1. HUMALOG [Suspect]
     Indication: DIABETES MELLITUS
     Dosage: 14 U, UNKNOWN
     Dates: start: 20020101

REACTIONS (6)
  - CARDIAC FAILURE CONGESTIVE [None]
  - CERVICAL VERTEBRAL FRACTURE [None]
  - INCORRECT DOSE ADMINISTERED [None]
  - PULMONARY OEDEMA [None]
  - ROAD TRAFFIC ACCIDENT [None]
  - WRIST FRACTURE [None]
